FAERS Safety Report 18721656 (Version 3)
Quarter: 2021Q1

REPORT INFORMATION
  Report Type: Spontaneous
  Country: US (occurrence: US)
  Receive Date: 20210110
  Receipt Date: 20210120
  Transmission Date: 20210419
  Serious: No
  Sender: FDA-Public Use
  Company Number: US-AMGEN INC.-USASP2021002169

PATIENT
  Age: 44 Year
  Sex: Female

DRUGS (2)
  1. AIMOVIG [Suspect]
     Active Substance: ERENUMAB-AOOE
     Indication: MIGRAINE
     Dosage: 140 MILLIGRAM
     Route: 065
  2. AIMOVIG [Suspect]
     Active Substance: ERENUMAB-AOOE
     Dosage: 70 MILLIGRAM
     Route: 065
     Dates: start: 201911

REACTIONS (7)
  - Therapeutic product effect variable [Unknown]
  - Insomnia [Unknown]
  - Product dose omission issue [Unknown]
  - Memory impairment [Unknown]
  - Feeding disorder [Unknown]
  - Product storage error [Unknown]
  - Stress [Unknown]

NARRATIVE: CASE EVENT DATE: 2020
